FAERS Safety Report 4953566-7 (Version None)
Quarter: 2006Q1

REPORT INFORMATION
  Report Type: 
  Country: None (occurrence: None)
  Receive Date: 20060324
  Receipt Date: 20051207
  Transmission Date: 20060701
  Serious: Yes (Hospitalization)
  Sender: FDA-Public Use
  Company Number: US-MERCK-0512USA01461

PATIENT
  Age: 55 Year
  Sex: Male
  Weight: 78 kg

DRUGS (11)
  1. VIOXX [Suspect]
     Indication: PAIN IN EXTREMITY
     Route: 048
     Dates: start: 20030701, end: 20031201
  2. GLIPIZIDE [Concomitant]
     Indication: DIABETES MELLITUS
     Route: 065
     Dates: start: 19890101
  3. AVANDIA [Concomitant]
     Indication: DIABETES MELLITUS
     Route: 065
     Dates: start: 19890101
  4. ZESTRIL [Concomitant]
     Indication: HYPERTENSION
     Route: 065
     Dates: start: 19890101
  5. TOPROL-XL [Concomitant]
     Route: 065
  6. LIPITOR [Concomitant]
     Indication: BLOOD CHOLESTEROL
     Route: 065
     Dates: start: 19890101
  7. ZOCOR [Concomitant]
     Route: 048
  8. CELEBREX [Concomitant]
     Route: 065
  9. LASIX [Concomitant]
     Indication: POLYURIA
     Route: 065
     Dates: start: 19890101
  10. SYNTHROID [Concomitant]
     Indication: THYROID DISORDER
     Route: 065
     Dates: start: 19890101
  11. ASPIRIN [Concomitant]
     Indication: PROPHYLAXIS
     Route: 065
     Dates: start: 19890101

REACTIONS (11)
  - ANXIETY [None]
  - BLOOD PRESSURE [None]
  - CARDIAC DISORDER [None]
  - DEPRESSION [None]
  - DIZZINESS [None]
  - HEADACHE [None]
  - MYOCARDIAL INFARCTION [None]
  - NAUSEA [None]
  - POST-TRAUMATIC STRESS DISORDER [None]
  - PRESCRIBED OVERDOSE [None]
  - VOMITING [None]
